FAERS Safety Report 7051824-6 (Version None)
Quarter: 2010Q4

REPORT INFORMATION
  Report Type: 
  Country: None (occurrence: None)
  Receive Date: 20101019
  Receipt Date: 20101012
  Transmission Date: 20110411
  Serious: Yes (Hospitalization)
  Sender: FDA-Public Use
  Company Number: JP-ABBOTT-10P-087-0665640-00

PATIENT
  Sex: Male
  Weight: 4.9 kg

DRUGS (4)
  1. SEVOFLURANE [Suspect]
     Indication: ANAESTHESIA
     Dosage: INDUCTION 8%, MAINTENANCE 2.5%
     Route: 055
     Dates: start: 20080716, end: 20080716
  2. ATROPINE SULFATE [Concomitant]
     Indication: ANAESTHESIA
     Route: 050
     Dates: start: 20080716, end: 20080716
  3. THIAMYLAL SODIUM [Concomitant]
     Indication: ANAESTHESIA
     Route: 050
     Dates: start: 20080716, end: 20080716
  4. NITROUS OXIDE [Concomitant]
     Indication: ANAESTHESIA
     Dates: start: 20080716, end: 20080716

REACTIONS (1)
  - ILEUS PARALYTIC [None]
